FAERS Safety Report 5628101-0 (Version None)
Quarter: 2008Q1

REPORT INFORMATION
  Report Type: 
  Country: None (occurrence: None)
  Receive Date: 20080215
  Receipt Date: 20080206
  Transmission Date: 20080703
  Serious: Yes (Other)
  Sender: FDA-Public Use
  Company Number: CA-ELI_LILLY_AND_COMPANY-CA200802001364

PATIENT
  Age: 31 Year
  Sex: Female

DRUGS (1)
  1. DULOXETINE LILLY [Suspect]
     Dosage: 60 MG, DAILY (1/D)
     Route: 048
     Dates: start: 20080204

REACTIONS (3)
  - FEELING ABNORMAL [None]
  - MYDRIASIS [None]
  - PARALYSIS [None]
